FAERS Safety Report 9993976 (Version 2)
Quarter: 2014Q1

REPORT INFORMATION
  Report Type: Spontaneous
  Country: US (occurrence: US)
  Receive Date: 20140310
  Receipt Date: 20140310
  Transmission Date: 20141002
  Serious: No
  Sender: FDA-Public Use
  Company Number: US-AMGEN-USASP2013028967

PATIENT
  Age: 49 Year
  Sex: Male

DRUGS (1)
  1. SENSIPAR [Suspect]
     Indication: BLOOD CALCIUM INCREASED
     Dosage: UNK
     Route: 065
     Dates: start: 201303

REACTIONS (1)
  - Constipation [Recovered/Resolved]
